FAERS Safety Report 10510268 (Version 1)
Quarter: 2014Q4

REPORT INFORMATION
  Report Type: Spontaneous
  Country: US (occurrence: None)
  Receive Date: 20141009
  Receipt Date: 20141009
  Transmission Date: 20150528
  Serious: No
  Sender: FDA-Public Use
  Company Number: None

PATIENT
  Age: 60 Year
  Sex: Female
  Weight: 56.7 kg

DRUGS (7)
  1. ACADADO OIL [Concomitant]
  2. LINZESS [Suspect]
     Active Substance: LINACLOTIDE
     Indication: IRRITABLE BOWEL SYNDROME
     Dosage: 1 CAPSULE; ONE IN A.M.
     Route: 048
     Dates: start: 201407
  3. BIOTIN [Concomitant]
     Active Substance: BIOTIN
  4. MULTI VITAMINS + MINERALS [Concomitant]
  5. VITAMIN A-D, C [Concomitant]
  6. COCONUT OIL [Concomitant]
     Active Substance: COCONUT OIL
  7. VITAMINS [Concomitant]
     Active Substance: VITAMINS

REACTIONS (5)
  - Depression [None]
  - Dyspepsia [None]
  - Faeces discoloured [None]
  - Abdominal pain [None]
  - Flatulence [None]

NARRATIVE: CASE EVENT DATE: 201407
